FAERS Safety Report 15804514 (Version 1)
Quarter: 2019Q1

REPORT INFORMATION
  Report Type: Spontaneous
  Country: BR (occurrence: BR)
  Receive Date: 20190109
  Receipt Date: 20190109
  Transmission Date: 20190417
  Serious: Yes (Other)
  Sender: FDA-Public Use
  Company Number: BR-PFIZER INC-2019006391

PATIENT
  Age: 65 Year
  Sex: Male

DRUGS (3)
  1. VASOPRIL PLUS [Concomitant]
     Active Substance: ENALAPRIL MALEATE\HYDROCHLOROTHIAZIDE
     Indication: BLOOD PRESSURE ABNORMAL
     Dosage: UNK
  2. LYRICA [Suspect]
     Active Substance: PREGABALIN
     Dosage: 300 MG, DAILY
     Dates: start: 2014
  3. LYRICA [Suspect]
     Active Substance: PREGABALIN
     Dosage: UNK
     Dates: start: 2011

REACTIONS (8)
  - Spinal pain [Unknown]
  - Spinal cord compression [Unknown]
  - Product dose omission [Unknown]
  - Pain in extremity [Unknown]
  - Feeling abnormal [Unknown]
  - Diarrhoea [Unknown]
  - Nodule [Unknown]
  - Gastrointestinal disorder [Unknown]

NARRATIVE: CASE EVENT DATE: 2014
